FAERS Safety Report 6275222-8 (Version None)
Quarter: 2009Q3

REPORT INFORMATION
  Report Type: 
  Country: None (occurrence: None)
  Receive Date: 20090721
  Receipt Date: 20090522
  Transmission Date: 20100115
  Serious: No
  Sender: FDA-Public Use
  Company Number: US-BAYER-200921765NA

PATIENT
  Age: 57 Year
  Sex: Female

DRUGS (1)
  1. CLIMARA PRO [Suspect]
     Indication: HORMONE REPLACEMENT THERAPY
     Dosage: 0.045 MG/DAY ESTRADIOL AND 0.015 MG/DAY LEVONORGESTREL
     Route: 062

REACTIONS (1)
  - APPLICATION SITE RASH [None]
